FAERS Safety Report 12952707 (Version 3)
Quarter: 2018Q3

REPORT INFORMATION
  Report Type: Spontaneous
  Country: US (occurrence: US)
  Receive Date: 20161117
  Receipt Date: 20180716
  Transmission Date: 20181010
  Serious: No
  Sender: FDA-Public Use
  Company Number: US-SA-2016SA163133

PATIENT
  Age: 75 Year
  Sex: Male

DRUGS (5)
  1. TOUJEO [Suspect]
     Active Substance: INSULIN GLARGINE
     Dosage: 13 DF,QD
     Route: 065
     Dates: start: 201607
  2. TOUJEO [Suspect]
     Active Substance: INSULIN GLARGINE
     Dosage: 12 DF,HS
     Route: 065
     Dates: start: 201601
  3. TOUJEO [Suspect]
     Active Substance: INSULIN GLARGINE
     Indication: TYPE 2 DIABETES MELLITUS
     Dosage: 12 DF,HS
     Route: 065
     Dates: start: 201601
  4. TOUJEO [Suspect]
     Active Substance: INSULIN GLARGINE
     Dosage: 16?20 UNITS OF TOUJEO ONCE DAILY
     Route: 065
  5. TOUJEO [Suspect]
     Active Substance: INSULIN GLARGINE
     Dosage: 13 DF,QD
     Route: 065
     Dates: start: 201607

REACTIONS (2)
  - Blood glucose abnormal [Not Recovered/Not Resolved]
  - Blood glucose increased [Unknown]
